FAERS Safety Report 5067532-7 (Version None)
Quarter: 2006Q3

REPORT INFORMATION
  Report Type: 
  Country: None (occurrence: None)
  Receive Date: 20060731
  Receipt Date: 20060711
  Transmission Date: 20061208
  Serious: Yes (Death)
  Sender: FDA-Public Use
  Company Number: US200607001909

PATIENT
  Age: 48 Year
  Sex: Female

DRUGS (3)
  1. ZYPREXA [Suspect]
     Indication: SCHIZOAFFECTIVE DISORDER
     Dosage: 5 MG, 3/D
     Dates: start: 20060608
  2. HALDOL [Concomitant]
  3. COGENTIN [Concomitant]

REACTIONS (3)
  - ASPIRATION [None]
  - ILEUS [None]
  - IMPAIRED GASTRIC EMPTYING [None]
